FAERS Safety Report 10466610 (Version 1)
Quarter: 2014Q3

REPORT INFORMATION
  Report Type: Spontaneous
  Country: None (occurrence: None)
  Receive Date: 20140918
  Receipt Date: 20140918
  Transmission Date: 20150326
  Serious: Yes (Hospitalization)
  Sender: FDA-Public Use
  Company Number: 2014TR0385

PATIENT
  Age: 8 Month
  Sex: Female

DRUGS (1)
  1. NITISINONE (NITISINONE) [Suspect]
     Active Substance: NITISINONE
     Indication: TYROSINAEMIA

REACTIONS (3)
  - Pneumococcal sepsis [None]
  - Pyrexia [None]
  - Abdominal distension [None]
